FAERS Safety Report 5956947-8 (Version None)
Quarter: 2008Q4

REPORT INFORMATION
  Report Type: 
  Country: None (occurrence: None)
  Receive Date: 20081118
  Receipt Date: 20081106
  Transmission Date: 20090506
  Serious: Yes (Congenital Anomaly, Other)
  Sender: FDA-Public Use
  Company Number: US-PFIZER INC-2007095360

PATIENT
  Sex: Female
  Weight: 3.2 kg

DRUGS (2)
  1. ZOLOFT [Suspect]
     Indication: DEPRESSION
     Route: 064
     Dates: start: 20010101
  2. VITAMIN TAB [Concomitant]

REACTIONS (14)
  - ALANINE AMINOTRANSFERASE INCREASED [None]
  - AORTIC ELONGATION [None]
  - ASPARTATE AMINOTRANSFERASE INCREASED [None]
  - BICUSPID AORTIC VALVE [None]
  - BLOOD ALKALINE PHOSPHATASE INCREASED [None]
  - BLOOD POTASSIUM INCREASED [None]
  - BLOOD SODIUM DECREASED [None]
  - COARCTATION OF THE AORTA [None]
  - CONVULSION [None]
  - DRUG EXPOSURE DURING PREGNANCY [None]
  - MONOCYTE COUNT INCREASED [None]
  - PATENT DUCTUS ARTERIOSUS [None]
  - SCAR [None]
  - VENTRICULAR SEPTAL DEFECT [None]
